APPROVED DRUG PRODUCT: METOLAZONE
Active Ingredient: METOLAZONE
Strength: 5MG
Dosage Form/Route: TABLET;ORAL
Application: A218606 | Product #002 | TE Code: AB
Applicant: IXORA LIFESCIENCE LLP
Approved: Apr 17, 2024 | RLD: No | RS: No | Type: RX